FAERS Safety Report 9745040 (Version 1)
Quarter: 2013Q4

REPORT INFORMATION
  Report Type: Report from Study
  Country: US (occurrence: US)
  Receive Date: 20131211
  Receipt Date: 20131211
  Transmission Date: 20140711
  Serious: Yes (Hospitalization)
  Sender: FDA-Public Use
  Company Number: US-ROCHE-1312485

PATIENT
  Age: 53 Year
  Sex: Male
  Weight: 90 kg

DRUGS (6)
  1. RITUXIMAB [Suspect]
     Indication: B-CELL LYMPHOMA
     Dosage: DATE OF LAST DOSE PRIOR TO SAE: 28/NOV/2013
     Route: 042
     Dates: start: 20131128
  2. BENDAMUSTINE [Suspect]
     Indication: B-CELL LYMPHOMA
     Dosage: DATE OF LAST DOSE PRIOR TO SAE: 28/NOV/2013
     Route: 042
     Dates: start: 20131128
  3. LENALIDOMIDE [Suspect]
     Indication: B-CELL LYMPHOMA
     Dosage: DATE OF LAST DOSE PRIOR TO SAE: 20/NOV/2013
     Route: 048
     Dates: start: 20131102
  4. PANTOPRAZOL [Concomitant]
     Indication: PROPHYLAXIS
     Route: 048
     Dates: start: 20131030
  5. ASCAL [Concomitant]
     Indication: PROPHYLAXIS
     Route: 048
     Dates: start: 20131030
  6. ARANESP [Concomitant]
     Indication: ANAEMIA
     Route: 058
     Dates: start: 20131114

REACTIONS (1)
  - Renal injury [Recovered/Resolved]
